FAERS Safety Report 6936351-6 (Version None)
Quarter: 2010Q3

REPORT INFORMATION
  Report Type: 
  Country: None (occurrence: None)
  Receive Date: 20100823
  Receipt Date: 20100812
  Transmission Date: 20110219
  Serious: Yes (Other)
  Sender: FDA-Public Use
  Company Number: US-PFIZER INC-2010045845

PATIENT
  Sex: Female

DRUGS (7)
  1. CHANTIX [Suspect]
     Indication: SMOKING CESSATION THERAPY
     Dosage: STARTER PACK
     Dates: start: 20080312, end: 20080416
  2. NORTRIPTYLINE [Concomitant]
     Indication: DEPRESSION
     Dosage: UNK
     Dates: start: 20071001, end: 20090601
  3. TEMAZEPAM [Concomitant]
     Indication: INSOMNIA
     Dosage: UNK
     Dates: start: 20071001, end: 20090601
  4. HYDROCODONE [Concomitant]
     Indication: BACK PAIN
     Dosage: UNK
     Dates: start: 20070401, end: 20090401
  5. HYDROCODONE [Concomitant]
     Indication: ARTHRALGIA
  6. TRAMADOL [Concomitant]
     Indication: BACK PAIN
     Dosage: UNK
     Dates: start: 20070401, end: 20081201
  7. TRAMADOL [Concomitant]
     Indication: ARTHRALGIA

REACTIONS (10)
  - ANGER [None]
  - ANXIETY [None]
  - DEPRESSION [None]
  - HEADACHE [None]
  - HOMICIDAL IDEATION [None]
  - INSOMNIA [None]
  - LOSS OF CONSCIOUSNESS [None]
  - MEMORY IMPAIRMENT [None]
  - MENTAL DISORDER [None]
  - SUICIDAL IDEATION [None]
